FAERS Safety Report 7644448 (Version 2)
Quarter: 2013Q3

REPORT INFORMATION
  Report Type: Spontaneous
  Country: US (occurrence: US)
  Receive Date: 20101028
  Receipt Date: 20130902
  Transmission Date: 20140515
  Serious: Yes (Congenital Anomaly)
  Sender: FDA-Public Use
  Company Number: US-RANBAXY-2010US-38846

PATIENT
  Age: 8 Year
  Sex: Female

DRUGS (1)
  1. ACCUTANE [Suspect]
     Indication: PRODUCT USED FOR UNKNOWN INDICATION
     Dosage: UNK, UNK
     Route: 064

REACTIONS (10)
  - Conductive deafness [Recovering/Resolving]
  - External auditory canal atresia [Unknown]
  - Ear canal stenosis [Unknown]
  - Developmental delay [Recovering/Resolving]
  - Ventricular septal defect [Unknown]
  - Hypotonia [Unknown]
  - Retinal anomaly congenital [Unknown]
  - Foetal exposure during pregnancy [Unknown]
  - Cholesteatoma [Unknown]
  - Microtia [Unknown]
